FAERS Safety Report 8328318-0 (Version None)
Quarter: 2012Q2

REPORT INFORMATION
  Report Type: 
  Country: None (occurrence: None)
  Receive Date: 20120502
  Receipt Date: 20120424
  Transmission Date: 20120825
  Serious: Yes (Hospitalization)
  Sender: FDA-Public Use
  Company Number: FR-PFIZER INC-2012105621

PATIENT
  Age: 51 Year
  Sex: Male

DRUGS (9)
  1. SOLU-MEDROL [Suspect]
     Dosage: 80 MG, 1X/DAY
     Route: 042
     Dates: start: 20111108, end: 20111108
  2. MIDAZOLAM HCL [Suspect]
     Dosage: 1 MG, 1X/DAY
     Route: 042
     Dates: start: 20111108, end: 20111108
  3. XANAX [Suspect]
     Indication: ANAESTHESIA
     Dosage: 1 DF, 1X/DAY UID/QD
     Route: 048
     Dates: start: 20111108, end: 20111108
  4. DIPRIVAN [Suspect]
     Dosage: 300 MG, 1X/DAY
     Route: 042
     Dates: start: 20111108, end: 20111108
  5. MORPHINE [Suspect]
     Indication: GENERAL ANAESTHESIA
     Dosage: UNK
     Route: 042
     Dates: start: 20111108, end: 20111110
  6. MORPHINE [Suspect]
     Indication: GENERAL ANAESTHESIA
     Dosage: 20 MG, 1X/DAY
     Route: 042
     Dates: start: 20111108, end: 20111108
  7. ACUPAN [Suspect]
     Indication: ANALGESIC THERAPY
     Dosage: 20 MG, 1X/DAY
     Route: 042
     Dates: start: 20111108, end: 20111109
  8. CEFAZOLIN [Suspect]
     Dosage: 2 G, 1X/DAY
     Route: 042
     Dates: start: 20111108, end: 20111108
  9. ACETAMINOPHEN [Suspect]
     Indication: ANALGESIC THERAPY
     Dosage: 1 G, 1X/DAY
     Route: 042
     Dates: start: 20111108, end: 20111110

REACTIONS (1)
  - PANCREATITIS ACUTE [None]
